FAERS Safety Report 14934747 (Version 1)
Quarter: 2018Q2

REPORT INFORMATION
  Report Type: Spontaneous
  Country: US (occurrence: US)
  Receive Date: 20180505
  Receipt Date: 20180505
  Transmission Date: 20180711
  Serious: Yes (Other)
  Sender: FDA-Public Use
  Company Number: None

PATIENT
  Age: 49 Year
  Sex: Female
  Weight: 99 kg

DRUGS (7)
  1. CYCLOSPORINE. [Concomitant]
     Active Substance: CYCLOSPORINE
  2. ZETIA [Concomitant]
     Active Substance: EZETIMIBE
  3. PREDNISONE. [Concomitant]
     Active Substance: PREDNISONE
  4. AZATHIAPRINE [Concomitant]
  5. VALSARTAN. [Concomitant]
     Active Substance: VALSARTAN
  6. BIOTIN [Concomitant]
     Active Substance: BIOTIN
  7. GABAPENTIN. [Suspect]
     Active Substance: GABAPENTIN
     Indication: PELVIC PAIN
     Dosage: ?          QUANTITY:1 DF DOSAGE FORM;?
     Route: 048
     Dates: start: 20180502, end: 20180503

REACTIONS (5)
  - Fall [None]
  - Vision blurred [None]
  - Multiple injuries [None]
  - Coordination abnormal [None]
  - Dizziness [None]

NARRATIVE: CASE EVENT DATE: 20180503
